FAERS Safety Report 16196660 (Version 1)
Quarter: 2019Q2

REPORT INFORMATION
  Report Type: Spontaneous
  Country: US (occurrence: US)
  Receive Date: 20190311
  Receipt Date: 20190311
  Transmission Date: 20190711
  Serious: No
  Sender: FDA-Public Use
  Company Number: None

PATIENT
  Age: 50 Year
  Sex: Female

DRUGS (1)
  1. CAPECITABINE TAB 500 MG [Suspect]
     Active Substance: CAPECITABINE
     Dosage: ?          OTHER DOSE:1500 - 2000MG;?
     Route: 048
     Dates: start: 201902

REACTIONS (3)
  - Diarrhoea [None]
  - Decreased appetite [None]
  - Blood potassium decreased [None]

NARRATIVE: CASE EVENT DATE: 20190311
